FAERS Safety Report 10616042 (Version 1)
Quarter: 2014Q4

REPORT INFORMATION
  Report Type: Report from Study
  Country: CO (occurrence: CO)
  Receive Date: 20141201
  Receipt Date: 20141201
  Transmission Date: 20150529
  Serious: Yes (Hospitalization)
  Sender: FDA-Public Use
  Company Number: CO-ABBVIE-14K-036-1313011-00

PATIENT
  Age: 68 Year
  Sex: Female
  Weight: 62 kg

DRUGS (5)
  1. ENATRAL [Concomitant]
     Indication: PRODUCT USED FOR UNKNOWN INDICATION
  2. EUGLUCON [Concomitant]
     Active Substance: GLYBURIDE
     Indication: PRODUCT USED FOR UNKNOWN INDICATION
     Dosage: 1 TABLET BEFORE BREAKFAST AND DINNER
  3. METOPROLOL [Concomitant]
     Active Substance: METOPROLOL
     Indication: PRODUCT USED FOR UNKNOWN INDICATION
  4. HUMIRA [Suspect]
     Active Substance: ADALIMUMAB
     Indication: RHEUMATOID ARTHRITIS
     Route: 058
     Dates: start: 20081230, end: 20141003
  5. DIUREX [Concomitant]
     Active Substance: PAMABROM
     Indication: PRODUCT USED FOR UNKNOWN INDICATION
     Dosage: A QUARTER OF TABLET DAILY

REACTIONS (2)
  - Bronchitis [Recovering/Resolving]
  - Malaise [Recovering/Resolving]

NARRATIVE: CASE EVENT DATE: 20141124
